FAERS Safety Report 5945972-9 (Version None)
Quarter: 2008Q4

REPORT INFORMATION
  Report Type: 
  Country: None (occurrence: None)
  Receive Date: 20081107
  Receipt Date: 20081107
  Transmission Date: 20090506
  Serious: Yes (Other)
  Sender: FDA-Public Use
  Company Number: None

PATIENT
  Age: 82 Year
  Sex: Male
  Weight: 81 kg

DRUGS (1)
  1. IMMUNE GLOBULIN NOS [Suspect]
     Indication: THROMBOCYTOPENIA
     Dosage: 84 GM EVERY 6 HOURS IV
     Route: 042
     Dates: start: 20080605, end: 20080612

REACTIONS (2)
  - BLOOD CREATININE INCREASED [None]
  - RENAL INJURY [None]
